FAERS Safety Report 7321065-3 (Version None)
Quarter: 2011Q1

REPORT INFORMATION
  Report Type: 
  Country: None (occurrence: None)
  Receive Date: 20110228
  Receipt Date: 20110228
  Transmission Date: 20110831
  Serious: Yes (Death, Hospitalization)
  Sender: FDA-Public Use
  Company Number: GB-ELI_LILLY_AND_COMPANY-GB201007007715

PATIENT
  Sex: Male
  Weight: 54.5 kg

DRUGS (35)
  1. NECITUMUMAB (11F8) (LY3012211) [Suspect]
     Dosage: 800 MG, 2 IN 3 WEEKS
     Route: 042
     Dates: start: 20100701
  2. ENSURE /06184901/ [Concomitant]
     Indication: MEDICAL DIET
     Dates: start: 20100708
  3. CIPROFLOXACIN [Concomitant]
     Indication: MUCOSAL INFLAMMATION
     Dates: start: 20100709, end: 20100714
  4. FOLIC ACID [Concomitant]
  5. VITAMIN B-12 [Concomitant]
  6. CLEXANE [Concomitant]
     Dosage: 20 MG, DAILY (1/D)
     Dates: start: 20100725, end: 20100726
  7. MORPHINE [Concomitant]
     Dosage: 20 MG, UNK
     Dates: start: 20100726, end: 20100726
  8. NAPROXEN [Concomitant]
     Indication: PAIN
     Dates: start: 20100608
  9. CO-DYDRAMOL [Concomitant]
     Indication: PAIN
     Dates: start: 20100608
  10. SENNA [Concomitant]
     Indication: CONSTIPATION
     Dates: start: 20100501
  11. ZOPICLONE [Concomitant]
     Indication: SEDATION
     Dates: start: 20100519
  12. OXETACAINE [Concomitant]
     Indication: MUCOSAL INFLAMMATION
     Dates: start: 20100710
  13. FLUCONAZOLE [Concomitant]
     Indication: MOUTH ULCERATION
     Dates: start: 20100712, end: 20100718
  14. GLYCERIN [Concomitant]
     Indication: CONSTIPATION
     Dates: start: 20100711, end: 20100711
  15. PEMETREXED [Suspect]
     Dosage: 425 MG, 1 IN 3 WEEKS
     Route: 042
     Dates: start: 20100701
  16. PARACETAMOL [Concomitant]
     Indication: PAIN
     Dates: start: 20100514
  17. LANSOPRAZOLE [Concomitant]
     Dates: start: 20100608
  18. LACTULOSE [Concomitant]
     Indication: CONSTIPATION
     Dates: start: 20100501
  19. DIFFLAM [Concomitant]
     Indication: MOUTH ULCERATION
     Dates: start: 20100708
  20. PEMETREXED [Suspect]
     Dosage: 425 MG, 1 IN 3 WEEKS
     Route: 042
     Dates: start: 20100722, end: 20100722
  21. DEXAMETHASONE [Concomitant]
     Indication: NAUSEA
     Dosage: UNK, UNK
     Dates: start: 20100603
  22. BRICANYL [Concomitant]
     Indication: CHRONIC OBSTRUCTIVE PULMONARY DISEASE
     Dates: start: 20100406
  23. CO-DANTHRAMER [Concomitant]
     Indication: CONSTIPATION
     Dates: start: 20100710, end: 20100711
  24. VITAMINS NOS [Concomitant]
     Indication: MEDICAL DIET
     Dates: start: 20100714
  25. CISPLATIN [Suspect]
     Dosage: 94 MG, 1 IN 3 WEEKS
     Route: 042
     Dates: start: 20100722, end: 20100722
  26. PARACETAMOL [Concomitant]
     Dosage: 1 G, DAILY (1/D)
     Dates: start: 20100725, end: 20100726
  27. ATROVENT [Concomitant]
     Indication: CHRONIC OBSTRUCTIVE PULMONARY DISEASE
     Dates: start: 20100520
  28. CARBOCISTEINE [Concomitant]
     Indication: PRODUCTIVE COUGH
     Dates: start: 20100715
  29. ORAMORPH SR [Concomitant]
     Indication: PAIN
     Dates: start: 20100708
  30. HYOSCINE HBR HYT [Concomitant]
     Dosage: 0.4 MG, UNK
     Dates: start: 20100726, end: 20100726
  31. SALINE [Concomitant]
     Indication: CHRONIC OBSTRUCTIVE PULMONARY DISEASE
     Dosage: 5 ML, VIA NEBULISER
     Dates: start: 20100712
  32. DIHYDROCODEINE BITARTRATE INJ [Concomitant]
     Indication: PAIN
     Dates: start: 20100708
  33. OMEPRAZOLE [Concomitant]
     Dosage: 40 MG, DAILY (1/D)
     Route: 042
     Dates: start: 20100725, end: 20100726
  34. NECITUMUMAB (11F8) (LY3012211) [Suspect]
     Dosage: 800 MG, 2 IN 3 WEEKS
     Route: 042
     Dates: start: 20100722, end: 20100722
  35. CISPLATIN [Suspect]
     Dosage: 94 MG, 1 IN 3 WEEKS
     Route: 042
     Dates: start: 20100701

REACTIONS (11)
  - INTESTINAL PERFORATION [None]
  - BLOOD BILIRUBIN INCREASED [None]
  - LYMPHOCYTE COUNT DECREASED [None]
  - PROTEIN TOTAL DECREASED [None]
  - PERITONITIS [None]
  - PROTHROMBIN TIME PROLONGED [None]
  - GAMMA-GLUTAMYLTRANSFERASE INCREASED [None]
  - BLOOD FIBRINOGEN INCREASED [None]
  - MONOCYTE COUNT DECREASED [None]
  - BLOOD GLUCOSE INCREASED [None]
  - GENERAL PHYSICAL HEALTH DETERIORATION [None]
